FAERS Safety Report 6317624-7 (Version None)
Quarter: 2009Q3

REPORT INFORMATION
  Report Type: 
  Country: None (occurrence: None)
  Receive Date: 20090821
  Receipt Date: 20090817
  Transmission Date: 20100115
  Serious: Yes (Hospitalization)
  Sender: FDA-Public Use
  Company Number: GB-BRISTOL-MYERS SQUIBB COMPANY-14746598

PATIENT
  Age: 96 Year
  Sex: Male

DRUGS (1)
  1. APROVEL TABS 150 MG [Suspect]
     Dosage: INITIALLY 75 MG DAILY INCREASED TO 150MG DAILY TOOK TWO 75MG TABLETS DAILY
     Dates: start: 20030101

REACTIONS (4)
  - BLOOD PRESSURE DECREASED [None]
  - COMA [None]
  - DRUG DISPENSING ERROR [None]
  - FALL [None]
